FAERS Safety Report 9231597 (Version 1)
Quarter: 2013Q2

REPORT INFORMATION
  Report Type: Spontaneous
  Country: US (occurrence: US)
  Receive Date: 20130415
  Receipt Date: 20130415
  Transmission Date: 20140414
  Serious: Yes (Life-Threatening, Hospitalization)
  Sender: FDA-Public Use
  Company Number: US-ABBOTT-13P-163-1075289-00

PATIENT
  Sex: Female

DRUGS (2)
  1. HUMIRA [Suspect]
     Indication: PRODUCT USED FOR UNKNOWN INDICATION
     Dates: start: 20080225, end: 200908
  2. METHOTREXATE [Concomitant]
     Dates: start: 2006

REACTIONS (17)
  - Mental status changes [Unknown]
  - Histoplasmosis [Unknown]
  - Hallucination [Unknown]
  - Chromaturia [Unknown]
  - Respiratory failure [Unknown]
  - Hepatitis acute [Unknown]
  - Acute hepatic failure [Unknown]
  - Convulsion [Unknown]
  - Septic shock [Unknown]
  - Pancreatitis [Unknown]
  - Abasia [Unknown]
  - Activities of daily living impaired [Unknown]
  - Amnesia [Unknown]
  - Restlessness [Unknown]
  - Disorientation [Unknown]
  - Arthritis [Unknown]
  - Impaired work ability [Unknown]
